FAERS Safety Report 19425342 (Version 2)
Quarter: 2021Q2

REPORT INFORMATION
  Report Type: Spontaneous
  Country: US (occurrence: US)
  Receive Date: 20210616
  Receipt Date: 20210625
  Transmission Date: 20210717
  Serious: No
  Sender: FDA-Public Use
  Company Number: US-PFIZER INC-2021565115

PATIENT
  Age: 61 Year
  Sex: Male

DRUGS (1)
  1. NICOTROL [Suspect]
     Active Substance: NICOTINE
     Indication: SMOKING CESSATION THERAPY
     Dosage: UNK (10 MG, 4 MG DELIVERED)

REACTIONS (3)
  - Poor quality product administered [Unknown]
  - Product taste abnormal [Unknown]
  - Drug ineffective [Unknown]
